FAERS Safety Report 20056811 (Version 1)
Quarter: 2021Q4

REPORT INFORMATION
  Report Type: Spontaneous
  Country: US (occurrence: US)
  Receive Date: 20211111
  Receipt Date: 20211111
  Transmission Date: 20220303
  Serious: Yes (Other)
  Sender: FDA-Public Use
  Company Number: US-SUN PHARMACEUTICAL INDUSTRIES LTD-2021R1-317251

PATIENT
  Age: 79 Year
  Sex: Male

DRUGS (3)
  1. METHOTREXATE [Suspect]
     Active Substance: METHOTREXATE
     Indication: Lymphocytic leukaemia
     Dosage: 10 MILLIGRAM, WEEKLY
     Route: 065
     Dates: start: 20200513, end: 20200819
  2. TACROLIMUS [Suspect]
     Active Substance: TACROLIMUS
     Indication: Lymphocytic leukaemia
     Dosage: 4 MILLIGRAM, DAILY
     Route: 065
     Dates: start: 20200228, end: 20200819
  3. ERYTHROPOIETIN [Suspect]
     Active Substance: ERYTHROPOIETIN
     Indication: Anaemia
     Dosage: UNK(60,000 UNITS BIWEEKLY)
     Route: 065

REACTIONS (1)
  - Therapy non-responder [Unknown]
